FAERS Safety Report 4307119-4 (Version None)
Quarter: 2004Q1

REPORT INFORMATION
  Report Type: 
  Country: None (occurrence: None)
  Receive Date: 20040225
  Receipt Date: 20040211
  Transmission Date: 20041129
  Serious: Yes (Hospitalization)
  Sender: FDA-Public Use
  Company Number: USA040259048

PATIENT
  Age: 70 Year
  Sex: Female

DRUGS (8)
  1. HUMULIN 70/30 [Suspect]
     Indication: DIABETES MELLITUS
     Dosage: 70 U/DAY
     Dates: start: 19940101
  2. ALPHAGAN [Concomitant]
  3. SYNTHROID [Concomitant]
  4. NADOLOL [Concomitant]
  5. SPIRONOLACTONE [Concomitant]
  6. FUROSEMIDE [Concomitant]
  7. DIOVAN [Concomitant]
  8. NEURONTIN [Concomitant]

REACTIONS (6)
  - CONCUSSION [None]
  - FALL [None]
  - FOOT AMPUTATION [None]
  - PARKINSON'S DISEASE [None]
  - SPINAL FRACTURE [None]
  - WRIST FRACTURE [None]
